FAERS Safety Report 6738041-1 (Version None)
Quarter: 2010Q2

REPORT INFORMATION
  Report Type: 
  Country: None (occurrence: None)
  Receive Date: 20100519
  Receipt Date: 20100506
  Transmission Date: 20101027
  Serious: Yes (Hospitalization)
  Sender: FDA-Public Use
  Company Number: 011589

PATIENT
  Age: 57 Year
  Sex: Female

DRUGS (3)
  1. KEPPRA [Suspect]
     Indication: EPILEPSY
     Dosage: 2750 MG ORAL
     Route: 048
     Dates: start: 20100101
  2. AMOXYPEN (AMOXYPEN) [Suspect]
     Indication: INFLAMMATION
     Dosage: 1000 MG, THRICE DAILY ORAL
     Route: 048
     Dates: start: 20100413, end: 20100420
  3. FOSAMAX [Concomitant]

REACTIONS (5)
  - ABDOMINAL PAIN [None]
  - BLOOD PRESSURE SYSTOLIC INCREASED [None]
  - DIARRHOEA [None]
  - HEART RATE DECREASED [None]
  - VOMITING [None]
